FAERS Safety Report 8296530-5 (Version None)
Quarter: 2012Q2

REPORT INFORMATION
  Report Type: 
  Country: None (occurrence: None)
  Receive Date: 20120418
  Receipt Date: 20120412
  Transmission Date: 20120825
  Serious: Yes (Hospitalization, Disabling, Other)
  Sender: FDA-Public Use
  Company Number: US-MERCK-1201USA00807

PATIENT
  Age: 50 Year
  Sex: Female
  Weight: 66 kg

DRUGS (12)
  1. FOSAMAX [Suspect]
     Indication: OSTEOPOROSIS
     Route: 048
     Dates: start: 20020731, end: 20061201
  2. ASCORBIC ACID [Concomitant]
     Route: 065
     Dates: start: 20030301, end: 20091001
  3. VITAMIN E [Concomitant]
     Route: 065
     Dates: start: 20030301, end: 20091001
  4. CALCIUM CARBONATE [Concomitant]
     Route: 065
     Dates: start: 19900101
  5. CALCIUM (UNSPECIFIED) [Concomitant]
     Route: 065
     Dates: start: 19900101, end: 20060801
  6. ACTONEL [Suspect]
     Route: 048
     Dates: start: 20070101, end: 20081101
  7. ACTONEL [Suspect]
     Route: 048
     Dates: start: 20070101, end: 20081101
  8. FOSAMAX [Suspect]
     Indication: OSTEOPENIA
     Route: 048
     Dates: start: 20020731, end: 20061201
  9. ACTONEL [Suspect]
     Indication: OSTEOPOROSIS
     Route: 048
     Dates: start: 20081201, end: 20100301
  10. ACTONEL [Suspect]
     Indication: OSTEOPENIA
     Route: 048
     Dates: start: 20081201, end: 20100301
  11. VITAMIN D (UNSPECIFIED) [Concomitant]
     Route: 065
     Dates: start: 20020701, end: 20070801
  12. VITAMINS (UNSPECIFIED) [Concomitant]
     Route: 065
     Dates: start: 19700101

REACTIONS (17)
  - FEMUR FRACTURE [None]
  - POSTMENOPAUSAL HAEMORRHAGE [None]
  - FALL [None]
  - FRACTURE NONUNION [None]
  - JOINT DISLOCATION [None]
  - VEIN DISORDER [None]
  - OSTEOMA [None]
  - RADIUS FRACTURE [None]
  - HUMERUS FRACTURE [None]
  - DYSLIPIDAEMIA [None]
  - BREAST CYST [None]
  - CHONDROPATHY [None]
  - BONE DENSITY DECREASED [None]
  - FOOT FRACTURE [None]
  - JOINT INJURY [None]
  - LIGAMENT RUPTURE [None]
  - MENOPAUSE [None]
